FAERS Safety Report 9512515 (Version 1)
Quarter: 2013Q1

REPORT INFORMATION
  Report Type: Spontaneous
  Country: US (occurrence: None)
  Receive Date: 20130305
  Receipt Date: 20130305
  Transmission Date: 20140127
  Serious: Yes (Disabling)
  Sender: FDA-Public Use
  Company Number: 163-21880-12102134

PATIENT
  Age: 65 Year
  Sex: Male
  Weight: 86.18 kg

DRUGS (8)
  1. REVLIMID (LENALIDOMIDE) (CAPSULES) [Suspect]
     Indication: PLASMA CELL MYELOMA
     Dosage: 1 IN 1D
     Route: 048
     Dates: start: 200912
  2. ACYCLOVIR (ACICLOVIR) (UNKNOWN) [Concomitant]
  3. BABY ASPIRIN (ACTYLSALICYLIC ACID) (UNKNOWN [Concomitant]
  4. COZAAR (LOSARTAN PATASSIUM) (UNKNOWN) [Concomitant]
  5. FOLIC ACID (FOLIC ACID) (UNKNOWN) [Concomitant]
  6. NEXIUM (ESOMEPRAZOLE) (UNKNOWN) [Concomitant]
  7. VITAMIN B6 (PYRIDOXINE HYDROCHLORIDE) (UNKNOWN) [Concomitant]
  8. VITAMIN B1 (THIAMINE HYDROCHLORIDE) (UNKNOWN) [Concomitant]

REACTIONS (1)
  - Arthralgia [None]
